FAERS Safety Report 12375351 (Version 1)
Quarter: 2016Q2

REPORT INFORMATION
  Report Type: Spontaneous
  Country: US (occurrence: None)
  Receive Date: 20160516
  Receipt Date: 20160516
  Transmission Date: 20160815
  Serious: No
  Sender: FDA-Public Use
  Company Number: None

PATIENT
  Age: 69 Year
  Sex: Male
  Weight: 104.33 kg

DRUGS (5)
  1. ROXICODONE [Concomitant]
     Active Substance: OXYCODONE HYDROCHLORIDE
  2. ZOLPIDEM 10 MG TAB NOR, 10 MG ARUBINDO PHARMA [Suspect]
     Active Substance: ZOLPIDEM\ZOLPIDEM TARTRATE
     Indication: INSOMNIA
     Dosage: 30 TABLET(S) AS NEEDED RECTAL
     Route: 054
     Dates: start: 20160420, end: 20160422
  3. OXYMORPHONE [Concomitant]
     Active Substance: OXYMORPHONE
  4. NORVASC [Concomitant]
     Active Substance: AMLODIPINE BESYLATE
  5. ATENELOL [Concomitant]
     Active Substance: ATENOLOL

REACTIONS (4)
  - Somnolence [None]
  - Balance disorder [None]
  - Product substitution issue [None]
  - Gait disturbance [None]

NARRATIVE: CASE EVENT DATE: 20160420
